FAERS Safety Report 9187748 (Version 2)
Quarter: 2013Q1

REPORT INFORMATION
  Report Type: Spontaneous
  Country: US (occurrence: US)
  Receive Date: 20130325
  Receipt Date: 20130325
  Transmission Date: 20140127
  Serious: No
  Sender: FDA-Public Use
  Company Number: US-MYLANLABS-2012S1006193

PATIENT
  Sex: Male

DRUGS (2)
  1. FENTANYL TRANSDERMAL SYSTEM [Suspect]
     Indication: ARTHRITIS
     Dosage: CHANGED Q48H
     Route: 062
  2. CELLULOSE [Suspect]
     Route: 062
     Dates: start: 2011, end: 2011

REACTIONS (5)
  - Wrong device used [Recovered/Resolved]
  - Overdose [Recovered/Resolved]
  - Feeling drunk [Not Recovered/Not Resolved]
  - Dizziness [Recovered/Resolved]
  - Feeling abnormal [Recovered/Resolved]
